FAERS Safety Report 7691337-1 (Version None)
Quarter: 2011Q3

REPORT INFORMATION
  Report Type: 
  Country: None (occurrence: None)
  Receive Date: 20110818
  Receipt Date: 20110808
  Transmission Date: 20111222
  Serious: Yes (Other)
  Sender: FDA-Public Use
  Company Number: PHFR2011GB04700

PATIENT
  Sex: Female

DRUGS (2)
  1. CLOZAPINE [Suspect]
     Indication: SCHIZOPHRENIA
     Route: 048
     Dates: start: 20081204
  2. CLOZAPINE [Suspect]
     Dosage: 300 MG/DAY
     Route: 048

REACTIONS (5)
  - SALIVARY HYPERSECRETION [None]
  - ANTIPSYCHOTIC DRUG LEVEL INCREASED [None]
  - ABDOMINAL DISCOMFORT [None]
  - CONFUSIONAL STATE [None]
  - CONSTIPATION [None]
